FAERS Safety Report 6887311-5 (Version None)
Quarter: 2010Q3

REPORT INFORMATION
  Report Type: 
  Country: None (occurrence: None)
  Receive Date: 20100730
  Receipt Date: 20090820
  Transmission Date: 20110219
  Serious: No
  Sender: FDA-Public Use
  Company Number: A0795484A

PATIENT
  Age: 32 Year
  Sex: Female

DRUGS (6)
  1. SUMATRIPTAN SUCCINATE [Suspect]
     Indication: MIGRAINE
     Dosage: 100MG AS REQUIRED
     Route: 048
     Dates: start: 20090301, end: 20090601
  2. ALLEGRA [Concomitant]
  3. CELEBREX [Concomitant]
  4. LOESTRIN 1.5/30 [Concomitant]
  5. SKELAXIN [Concomitant]
  6. LIBRAX [Concomitant]

REACTIONS (3)
  - DISABILITY [None]
  - DRUG INEFFECTIVE [None]
  - PRODUCT QUALITY ISSUE [None]
